FAERS Safety Report 19273198 (Version 1)
Quarter: 2021Q2

REPORT INFORMATION
  Report Type: Spontaneous
  Country: US (occurrence: US)
  Receive Date: 20210519
  Receipt Date: 20210519
  Transmission Date: 20210717
  Serious: Yes (Disabling, Other)
  Sender: FDA-Public Use
  Company Number: US-SA-2021SA158607

PATIENT
  Age: 68 Year
  Sex: Male

DRUGS (18)
  1. PROVENTIL HFA [SALBUTAMOL] [Concomitant]
     Indication: ASTHMA
     Dosage: 2 DF, PRN; EVERY 6 HOURS AS NEEDED
     Route: 055
  2. SPIRIVA [Concomitant]
     Active Substance: TIOTROPIUM BROMIDE MONOHYDRATE
     Indication: WHEEZING
  3. PRILOSEC [Concomitant]
     Active Substance: OMEPRAZOLE MAGNESIUM
     Indication: GASTROOESOPHAGEAL REFLUX DISEASE
     Dosage: 20 MG, QD, EVERY MORNING BEFORE BREAKFAST
     Route: 048
     Dates: start: 2017
  4. PROVENTIL HFA [SALBUTAMOL] [Concomitant]
     Indication: EMPHYSEMA
  5. VENTOLIN HFA [Concomitant]
     Active Substance: ALBUTEROL SULFATE
     Indication: WHEEZING
  6. PROAIR HFA [Concomitant]
     Active Substance: ALBUTEROL SULFATE
     Indication: WHEEZING
  7. ZANTAC 150 (RANITIDINE HYDROCHLORIDE) [Suspect]
     Active Substance: RANITIDINE HYDROCHLORIDE
     Indication: GASTROOESOPHAGEAL REFLUX DISEASE
     Dosage: 150 MG, HS, ONE TABLET EVERY NIGHT BEFORE GOING TO BED
     Dates: start: 201710, end: 201809
  8. MELATONIN [Concomitant]
     Active Substance: MELATONIN
     Dosage: 1 DF, QD
     Route: 048
  9. AZITHROMYCIN ANHYDROUS. [Concomitant]
     Active Substance: AZITHROMYCIN ANHYDROUS
     Indication: URETHRITIS
     Dosage: UNK
     Route: 048
  10. PROAIR HFA [Concomitant]
     Active Substance: ALBUTEROL SULFATE
     Indication: EMPHYSEMA
     Dosage: 2 DF, PRN; EVERY 6 HOURS AS NEEDED
     Route: 055
  11. PROVENTIL HFA [SALBUTAMOL] [Concomitant]
     Indication: WHEEZING
  12. VENTOLIN HFA [Concomitant]
     Active Substance: ALBUTEROL SULFATE
     Indication: ASTHMA
     Dosage: 2 DF, PRN; EVERY 6 HOURS AS NEEDED
     Route: 055
  13. VENTOLIN HFA [Concomitant]
     Active Substance: ALBUTEROL SULFATE
     Indication: EMPHYSEMA
  14. SPIRIVA [Concomitant]
     Active Substance: TIOTROPIUM BROMIDE MONOHYDRATE
     Indication: EMPHYSEMA
     Dosage: 18 UG, QD
     Route: 055
  15. FERROUS SULFATE. [Concomitant]
     Active Substance: FERROUS SULFATE
     Indication: IRON DEFICIENCY ANAEMIA
     Dosage: 1 DF, QD
     Route: 048
  16. FOLIC ACID. [Concomitant]
     Active Substance: FOLIC ACID
     Indication: FOLATE DEFICIENCY
     Dosage: 1 DF, QD
     Route: 048
  17. DOXYCYCLINE HYCLATE. [Concomitant]
     Active Substance: DOXYCYCLINE HYCLATE
     Indication: URETHRITIS
     Dosage: 1 DF, BID
     Route: 048
  18. AZITHROMYCIN ANHYDROUS. [Concomitant]
     Active Substance: AZITHROMYCIN ANHYDROUS
     Dosage: 4 DF
     Route: 048

REACTIONS (5)
  - Lung neoplasm malignant [Unknown]
  - Hepatic cancer metastatic [Unknown]
  - Abdominal pain upper [Recovered/Resolved]
  - Adenocarcinoma of colon [Recovered/Resolved]
  - Chronic hepatitis C [Unknown]

NARRATIVE: CASE EVENT DATE: 20180615
